FAERS Safety Report 10356893 (Version 1)
Quarter: 2014Q3

REPORT INFORMATION
  Report Type: Spontaneous
  Country: IT (occurrence: IT)
  Receive Date: 20140801
  Receipt Date: 20140801
  Transmission Date: 20150326
  Serious: Yes (Other)
  Sender: FDA-Public Use
  Company Number: IT-JNJFOC-20140716146

PATIENT
  Sex: Male

DRUGS (4)
  1. ABIRATERONE ACETATE [Suspect]
     Active Substance: ABIRATERONE ACETATE
     Indication: PROSTATE CANCER
     Route: 048
  2. PREDNISONE. [Concomitant]
     Active Substance: PREDNISONE
     Route: 065
  3. CANRENONE [Concomitant]
     Active Substance: CANRENONE
     Route: 065
  4. DEXAMETASONE [Concomitant]
     Route: 065

REACTIONS (6)
  - Prostate cancer [Unknown]
  - Acute coronary syndrome [Unknown]
  - Syncope [Unknown]
  - Pulmonary oedema [Unknown]
  - Sinus bradycardia [Unknown]
  - Cardiac failure [Unknown]
